FAERS Safety Report 22646629 (Version 1)
Quarter: 2023Q2

REPORT INFORMATION
  Report Type: Spontaneous
  Country: JP (occurrence: JP)
  Receive Date: 20230627
  Receipt Date: 20230627
  Transmission Date: 20230722
  Serious: Yes (Hospitalization, Other)
  Sender: FDA-Public Use
  Company Number: JP-TAKEDA-2023TUS049750

PATIENT
  Age: 38 Year
  Sex: Female

DRUGS (3)
  1. LIALDA [Suspect]
     Active Substance: MESALAMINE
     Indication: Colitis ulcerative
     Dosage: 4800 MILLIGRAM, QD
     Route: 048
     Dates: start: 20230426, end: 20230512
  2. BIO-THREE [Concomitant]
     Active Substance: HERBALS
     Indication: Haematochezia
     Dosage: 1 DOSAGE FORM, BID
     Route: 048
     Dates: start: 20230401
  3. GLUTAMINE\SODIUM GUALENATE [Concomitant]
     Active Substance: GLUTAMINE\SODIUM GUALENATE
     Indication: Haematochezia
     Dosage: 1 DOSAGE FORM, BID
     Route: 048
     Dates: start: 20230401

REACTIONS (8)
  - Liver disorder [Unknown]
  - Lymphadenitis [Recovering/Resolving]
  - Pyrexia [Recovered/Resolved]
  - Lymphadenopathy [Recovering/Resolving]
  - Upper respiratory tract infection [Unknown]
  - Cough [Recovered/Resolved]
  - Headache [Recovered/Resolved]
  - Arthralgia [Recovered/Resolved]

NARRATIVE: CASE EVENT DATE: 20230427
